FAERS Safety Report 13467149 (Version 3)
Quarter: 2017Q3

REPORT INFORMATION
  Report Type: Report from Study
  Country: ID (occurrence: ID)
  Receive Date: 20170421
  Receipt Date: 20170914
  Transmission Date: 20171127
  Serious: Yes (Death, Life-Threatening, Hospitalization, Other)
  Sender: FDA-Public Use
  Company Number: ID-BAYER-2016-209231

PATIENT
  Age: 48 Year
  Sex: Male

DRUGS (3)
  1. NEXAVAR [Suspect]
     Active Substance: SORAFENIB
     Indication: HEPATOCELLULAR CARCINOMA
     Dosage: 400 MG DAILY DOSE (2 X 200 MG TABLET)
     Route: 048
     Dates: end: 20170825
  2. NEXAVAR [Suspect]
     Active Substance: SORAFENIB
     Indication: HEPATOCELLULAR CARCINOMA
     Dosage: UNK
     Route: 048
  3. NEXAVAR [Suspect]
     Active Substance: SORAFENIB
     Indication: HEPATOCELLULAR CARCINOMA
     Dosage: 400 MG DAILY DOSE (2 X 200 MG TABLET)
     Route: 048
     Dates: start: 20160905

REACTIONS (18)
  - General physical health deterioration [None]
  - Coma [None]
  - Melaena [Recovered/Resolved]
  - Ascites [None]
  - Loss of consciousness [None]
  - Decreased appetite [None]
  - Blood albumin decreased [Recovered/Resolved]
  - Blood albumin decreased [None]
  - Hepatocellular carcinoma [Fatal]
  - Respiratory arrest [Fatal]
  - Haemoglobin decreased [Recovered/Resolved]
  - Haematemesis [Recovered/Resolved]
  - Melaena [None]
  - Erythema [Recovering/Resolving]
  - Metastases to lung [Fatal]
  - Cough [Not Recovered/Not Resolved]
  - Skin exfoliation [None]
  - Palmoplantar keratoderma [Recovering/Resolving]

NARRATIVE: CASE EVENT DATE: 2016
